FAERS Safety Report 5118383-6 (Version None)
Quarter: 2006Q4

REPORT INFORMATION
  Report Type: 
  Country: None (occurrence: None)
  Receive Date: 20061002
  Receipt Date: 20060217
  Transmission Date: 20070319
  Serious: Yes (Hospitalization)
  Sender: FDA-Public Use
  Company Number: FR-BAYER-200610176BFR

PATIENT
  Age: 71 Year
  Sex: Male
  Weight: 90 kg

DRUGS (14)
  1. SORAFENIB [Suspect]
     Indication: RENAL CELL CARCINOMA STAGE UNSPECIFIED
     Dosage: TOTAL DAILY DOSE: 800 MG  UNIT DOSE: 200 MG
     Route: 048
     Dates: start: 20051213
  2. SORAFENIB [Suspect]
     Dosage: TOTAL DAILY DOSE: 200 MG  UNIT DOSE: 200 MG
     Route: 048
     Dates: start: 20060211, end: 20060215
  3. SORAFENIB [Suspect]
     Route: 048
     Dates: start: 20060316
  4. SORAFENIB [Suspect]
     Dosage: TOTAL DAILY DOSE: 400 MG  UNIT DOSE: 200 MG
     Route: 048
     Dates: start: 20060109, end: 20060206
  5. NEURONTIN [Concomitant]
     Indication: CONVULSION PROPHYLAXIS
     Route: 048
     Dates: start: 20060101
  6. KEPPRA [Concomitant]
     Indication: CONVULSION PROPHYLAXIS
     Route: 048
     Dates: start: 20051226
  7. VASTEN [Concomitant]
     Indication: HYPERCHOLESTEROLAEMIA
     Route: 048
     Dates: start: 19970101
  8. ASPIRIN [Concomitant]
     Indication: THROMBOSIS PROPHYLAXIS
     Route: 048
     Dates: start: 20010101
  9. PERINDOPRIL ERBUMINE [Concomitant]
     Indication: HYPERTENSION
     Route: 048
     Dates: start: 20050101
  10. PRIMPERAN TAB [Concomitant]
     Indication: NAUSEA
     Route: 048
     Dates: start: 20060128, end: 20060129
  11. CETIRIZINE HCL [Concomitant]
     Indication: RASH
     Route: 048
     Dates: start: 20060109, end: 20060114
  12. IMODIUM [Concomitant]
     Indication: DIARRHOEA
     Route: 048
     Dates: start: 20060131, end: 20060205
  13. TIORFAN [Concomitant]
     Indication: DIARRHOEA
     Route: 048
     Dates: start: 20060211
  14. SMECTA [Concomitant]
     Indication: DIARRHOEA
     Route: 048
     Dates: start: 20060211

REACTIONS (6)
  - ATRIAL FLUTTER [None]
  - DEHYDRATION [None]
  - NAUSEA [None]
  - PERFORMANCE STATUS DECREASED [None]
  - RASH [None]
  - RENAL FAILURE [None]
